FAERS Safety Report 16235472 (Version 1)
Quarter: 2019Q2

REPORT INFORMATION
  Report Type: Spontaneous
  Country: US (occurrence: US)
  Receive Date: 20190424
  Receipt Date: 20190424
  Transmission Date: 20190711
  Serious: No
  Sender: FDA-Public Use
  Company Number: US-VIFOR (INTERNATIONAL) INC.-VIT-2019-03520

PATIENT
  Age: 68 Year
  Sex: Male

DRUGS (3)
  1. VELTASSA [Suspect]
     Active Substance: PATIROMER
     Indication: BLOOD POTASSIUM INCREASED
     Dates: start: 20180927
  2. VELTASSA [Suspect]
     Active Substance: PATIROMER
     Dates: start: 20190220
  3. VELTASSA [Suspect]
     Active Substance: PATIROMER
     Dates: start: 20190327

REACTIONS (3)
  - Off label use [Unknown]
  - Drug ineffective [Unknown]
  - No adverse event [Unknown]
